FAERS Safety Report 7353649-0 (Version None)
Quarter: 2011Q1

REPORT INFORMATION
  Report Type: 
  Country: None (occurrence: None)
  Receive Date: 20110303
  Receipt Date: 20100701
  Transmission Date: 20110831
  Serious: Yes (Other)
  Sender: FDA-Public Use
  Company Number: US-004669

PATIENT
  Age: 27 Year
  Sex: Female

DRUGS (5)
  1. MORPHINE [Concomitant]
  2. ISOVUE-300 [Suspect]
     Indication: COMPUTERISED TOMOGRAM ABDOMEN
     Dosage: 100ML ONCE INTRAVENOUS (NOT OTHERWISE SPECIFIED)
     Route: 042
     Dates: start: 20100630, end: 20100630
  3. ISOVUE-300 [Suspect]
     Indication: ABSCESS
     Dosage: 100ML ONCE INTRAVENOUS (NOT OTHERWISE SPECIFIED)
     Route: 042
     Dates: start: 20100630, end: 20100630
  4. ISOVUE-300 [Suspect]
     Indication: PAIN
     Dosage: 100ML ONCE INTRAVENOUS (NOT OTHERWISE SPECIFIED)
     Route: 042
     Dates: start: 20100630, end: 20100630
  5. TORADOL [Concomitant]

REACTIONS (1)
  - ANAPHYLACTIC REACTION [None]
